FAERS Safety Report 9723672 (Version 3)
Quarter: 2015Q4

REPORT INFORMATION
  Report Type: Spontaneous
  Country: NO (occurrence: NO)
  Receive Date: 20131202
  Receipt Date: 20151008
  Transmission Date: 20160305
  Serious: Yes (Other)
  Sender: FDA-Public Use
  Company Number: NO-GLAXOSMITHKLINE-B0948526A

PATIENT
  Sex: Male

DRUGS (4)
  1. MADOPAR SOLUBILE 12.5/50 [Concomitant]
     Indication: PARKINSON^S DISEASE
     Dosage: 12.5/50
     Route: 048
     Dates: start: 201301
  2. STALEVO [Concomitant]
     Active Substance: CARBIDOPA\ENTACAPONE\LEVODOPA
     Indication: PARKINSON^S DISEASE
     Dosage: 125/31,25/200 X4
     Route: 048
     Dates: start: 201206
  3. REQUIP [Suspect]
     Active Substance: ROPINIROLE HYDROCHLORIDE
     Indication: PARKINSON^S DISEASE
     Route: 048
     Dates: start: 200911
  4. AZILECT [Concomitant]
     Active Substance: RASAGILINE MESYLATE
     Indication: PARKINSON^S DISEASE
     Route: 048
     Dates: start: 201206

REACTIONS (4)
  - Economic problem [Unknown]
  - Personality change [Recovered/Resolved with Sequelae]
  - Ill-defined disorder [Recovered/Resolved]
  - Impulse-control disorder [Recovered/Resolved with Sequelae]

NARRATIVE: CASE EVENT DATE: 2009
